FAERS Safety Report 9746947 (Version 2)
Quarter: 2013Q4

REPORT INFORMATION
  Report Type: Spontaneous
  Country: DZ (occurrence: DZ)
  Receive Date: 20131211
  Receipt Date: 20131226
  Transmission Date: 20140711
  Serious: No
  Sender: FDA-Public Use
  Company Number: DZ-ABBVIE-13P-003-1178359-00

PATIENT
  Age: 9 Year
  Sex: Male
  Weight: 29 kg

DRUGS (1)
  1. ZECLAR [Suspect]
     Indication: PHARYNGITIS
     Route: 048
     Dates: start: 20131127, end: 20131127

REACTIONS (2)
  - Generalised erythema [Recovered/Resolved]
  - Face oedema [Recovered/Resolved]
